FAERS Safety Report 25226757 (Version 1)
Quarter: 2025Q2

REPORT INFORMATION
  Report Type: Spontaneous
  Country: US (occurrence: None)
  Receive Date: 20250422
  Receipt Date: 20250422
  Transmission Date: 20250717
  Serious: Yes (Life-Threatening, Hospitalization)
  Sender: FDA-CTU
  Company Number: None

PATIENT
  Age: 46 Year
  Sex: Female
  Weight: 46.9 kg

DRUGS (4)
  1. CEFTRIAXONE [Suspect]
     Active Substance: CEFTRIAXONE
     Indication: Prophylaxis
     Route: 042
     Dates: start: 20250415, end: 20250415
  2. CEFTRIAXONE [Suspect]
     Active Substance: CEFTRIAXONE
     Indication: Surgery
  3. PROPOFOL [Suspect]
     Active Substance: PROPOFOL
     Dates: start: 20250415, end: 20250415
  4. SEVOFLURANE [Suspect]
     Active Substance: SEVOFLURANE
     Dates: start: 20250415, end: 20250415

REACTIONS (3)
  - Hypotension [None]
  - Tachycardia [None]
  - Anaphylactic reaction [None]

NARRATIVE: CASE EVENT DATE: 20250415
